FAERS Safety Report 24316673 (Version 1)
Quarter: 2024Q3

REPORT INFORMATION
  Report Type: Spontaneous
  Country: RO (occurrence: RO)
  Receive Date: 20240913
  Receipt Date: 20240913
  Transmission Date: 20241017
  Serious: Yes (Death)
  Sender: DR REDDYS
  Company Number: RO-GERMAN-SPO/ROU/24/0013307

PATIENT
  Age: 73 Year
  Sex: Male

DRUGS (2)
  1. LENALIDOMIDE [Suspect]
     Active Substance: LENALIDOMIDE
     Indication: Osteolysis
  2. BORTEZOMIB [Suspect]
     Active Substance: BORTEZOMIB
     Indication: Osteolysis

REACTIONS (2)
  - Pulmonary embolism [Fatal]
  - Drug ineffective for unapproved indication [Fatal]
